FAERS Safety Report 5934210-9 (Version None)
Quarter: 2008Q4

REPORT INFORMATION
  Report Type: 
  Country: None (occurrence: None)
  Receive Date: 20081029
  Receipt Date: 20081021
  Transmission Date: 20090506
  Serious: Yes (Other)
  Sender: FDA-Public Use
  Company Number: SE-AMGEN-UK314800

PATIENT
  Sex: Female

DRUGS (2)
  1. ARANESP [Suspect]
     Indication: ANAEMIA
  2. BLOOD, WHOLE [Concomitant]
     Route: 042

REACTIONS (1)
  - APLASIA PURE RED CELL [None]
